FAERS Safety Report 5343453-7 (Version None)
Quarter: 2007Q2

REPORT INFORMATION
  Report Type: 
  Country: None (occurrence: None)
  Receive Date: 20070531
  Receipt Date: 20070215
  Transmission Date: 20071010
  Serious: Yes (Hospitalization, Other)
  Sender: FDA-Public Use
  Company Number: 2007VX000715

PATIENT
  Age: 64 Year
  Sex: Male
  Weight: 80 kg

DRUGS (5)
  1. FLURAZEPAM HYDROCHLORIDE [Suspect]
     Dosage: ; PO
     Route: 048
  2. DIAZEPAM [Suspect]
     Dosage: ; PO
     Route: 048
  3. DISTRANEURIN (CLOMETHIAZOLE EDISILATE) [Suspect]
     Dosage: ; PO
     Route: 048
  4. FLUNITRAZEPAM (FLUNITRAZEPAM) [Suspect]
     Dosage: ; PO
     Route: 048
  5. ROHYPNOL (FLUNITRAZEPAM) [Suspect]
     Dosage: ; PO
     Route: 048

REACTIONS (5)
  - MULTIPLE DRUG OVERDOSE [None]
  - MYDRIASIS [None]
  - PUPILS UNEQUAL [None]
  - SOMNOLENCE [None]
  - SUICIDE ATTEMPT [None]
